FAERS Safety Report 17402290 (Version 3)
Quarter: 2020Q1

REPORT INFORMATION
  Report Type: Spontaneous
  Country: US (occurrence: US)
  Receive Date: 20200211
  Receipt Date: 20200303
  Transmission Date: 20200409
  Serious: No
  Sender: FDA-Public Use
  Company Number: US-SA-2020SA033141

PATIENT
  Age: 62 Year
  Sex: Female

DRUGS (4)
  1. DUPIXENT [Suspect]
     Active Substance: DUPILUMAB
     Dosage: 300 MG, QOW
     Route: 058
  2. DUPIXENT [Suspect]
     Active Substance: DUPILUMAB
     Dosage: 300 MG, QOW
     Route: 058
     Dates: start: 20190117
  3. DUPIXENT [Suspect]
     Active Substance: DUPILUMAB
     Dosage: 2 DF, 1X
     Route: 058
     Dates: start: 202001, end: 202001
  4. DUPIXENT [Suspect]
     Active Substance: DUPILUMAB
     Dosage: 2 DF
     Route: 058
     Dates: start: 20200124

REACTIONS (4)
  - Skin swelling [Unknown]
  - Skin ulcer [Unknown]
  - Injection site pain [Unknown]
  - Extra dose administered [Unknown]

NARRATIVE: CASE EVENT DATE: 20200124
